FAERS Safety Report 8394302-4 (Version None)
Quarter: 2012Q2

REPORT INFORMATION
  Report Type: 
  Country: None (occurrence: None)
  Receive Date: 20120530
  Receipt Date: 20120522
  Transmission Date: 20120825
  Serious: Yes (Other)
  Sender: FDA-Public Use
  Company Number: US-US-EMD SERONO, INC.-7133389

PATIENT
  Sex: Female
  Weight: 73 kg

DRUGS (2)
  1. UNSPECIFIED MEDICATION FOR DEPRESSION [Concomitant]
     Indication: DEPRESSION
  2. REBIF [Suspect]
     Indication: MULTIPLE SCLEROSIS
     Route: 058
     Dates: start: 20060220

REACTIONS (6)
  - AGEUSIA [None]
  - ANOSMIA [None]
  - WEIGHT INCREASED [None]
  - ASTHENIA [None]
  - MEMORY IMPAIRMENT [None]
  - ARTHRITIS [None]
